FAERS Safety Report 5874704-8 (Version None)
Quarter: 2008Q3

REPORT INFORMATION
  Report Type: 
  Country: None (occurrence: None)
  Receive Date: 20080909
  Receipt Date: 20080904
  Transmission Date: 20090109
  Serious: Yes (Other)
  Sender: FDA-Public Use
  Company Number: CH-BRISTOL-MYERS SQUIBB COMPANY-14225288

PATIENT

DRUGS (1)
  1. ERBITUX [Suspect]

REACTIONS (1)
  - VERTIGO [None]
